FAERS Safety Report 7300269-X (Version None)
Quarter: 2011Q1

REPORT INFORMATION
  Report Type: 
  Country: None (occurrence: None)
  Receive Date: 20110217
  Receipt Date: 20110203
  Transmission Date: 20110831
  Serious: No
  Sender: FDA-Public Use
  Company Number: US-BIOGENIDEC-2011BI005058

PATIENT
  Sex: Female

DRUGS (2)
  1. AVONEX [Concomitant]
     Indication: MULTIPLE SCLEROSIS
     Route: 030
     Dates: start: 20070126
  2. TYSABRI [Suspect]
     Indication: MULTIPLE SCLEROSIS
     Route: 042
     Dates: start: 20081119

REACTIONS (21)
  - GAIT DISTURBANCE [None]
  - BRONCHITIS [None]
  - HYPOAESTHESIA [None]
  - BALANCE DISORDER [None]
  - DEAFNESS UNILATERAL [None]
  - PAIN [None]
  - MUSCLE SPASMS [None]
  - DECREASED IMMUNE RESPONSIVENESS [None]
  - NASOPHARYNGITIS [None]
  - PNEUMONIA [None]
  - EAR INFECTION [None]
  - FEELING HOT [None]
  - TREMOR [None]
  - VERTIGO [None]
  - PYREXIA [None]
  - EAR CONGESTION [None]
  - NAUSEA [None]
  - MIGRAINE [None]
  - FATIGUE [None]
  - SINUSITIS [None]
  - DIZZINESS [None]
